FAERS Safety Report 9160057 (Version 1)
Quarter: 2013Q1

REPORT INFORMATION
  Report Type: Spontaneous
  Country: US (occurrence: US)
  Receive Date: 20130313
  Receipt Date: 20130313
  Transmission Date: 20140127
  Serious: Yes (Other)
  Sender: FDA-Public Use
  Company Number: US-MYLANLABS-2013S1005036

PATIENT
  Age: 5 Year
  Sex: Male

DRUGS (1)
  1. CYSTAGON CAPSULES [Suspect]
     Indication: AMINO ACID METABOLISM DISORDER
     Route: 048
     Dates: start: 20120301

REACTIONS (1)
  - Pain [Not Recovered/Not Resolved]
